FAERS Safety Report 8304769-5 (Version None)
Quarter: 2012Q2

REPORT INFORMATION
  Report Type: 
  Country: None (occurrence: None)
  Receive Date: 20120423
  Receipt Date: 20120412
  Transmission Date: 20120825
  Serious: Yes (Hospitalization)
  Sender: FDA-Public Use
  Company Number: US-ASTRAZENECA-2012SE23966

PATIENT
  Age: 72 Year
  Sex: Female
  Weight: 86.2 kg

DRUGS (3)
  1. CRESTOR [Suspect]
     Indication: BLOOD CHOLESTEROL
     Route: 048
     Dates: start: 20120404, end: 20120404
  2. HUMALOG [Concomitant]
  3. LEVEMIR [Concomitant]

REACTIONS (4)
  - ABDOMINAL PAIN [None]
  - RENAL DISORDER [None]
  - ABASIA [None]
  - MUSCLE SPASMS [None]
